FAERS Safety Report 5015754-3 (Version None)
Quarter: 2006Q2

REPORT INFORMATION
  Report Type: 
  Country: None (occurrence: None)
  Receive Date: 20060525
  Receipt Date: 20060511
  Transmission Date: 20061013
  Serious: Yes (Hospitalization)
  Sender: FDA-Public Use
  Company Number: 2005JP002108

PATIENT
  Age: 57 Year
  Sex: Male
  Weight: 56 kg

DRUGS (18)
  1. TACROLIMUS CAPSULES(TACROLIMUS) CAPSULES [Suspect]
     Indication: RHEUMATOID ARTHRITIS
     Dosage: 3MG, UID/QD; ORAL
     Route: 048
     Dates: start: 20050701, end: 20051020
  2. PREDNISOLONE [Suspect]
     Indication: RHEUMATOID ARTHRITIS
     Dosage: SEE IMAGE
     Route: 048
     Dates: start: 20040512, end: 20050730
  3. PREDNISOLONE [Suspect]
     Indication: RHEUMATOID ARTHRITIS
     Dosage: SEE IMAGE
     Route: 048
     Dates: start: 20050731, end: 20050811
  4. PREDNISOLONE [Suspect]
     Indication: RHEUMATOID ARTHRITIS
     Dosage: SEE IMAGE
     Route: 048
     Dates: start: 20050812, end: 20050825
  5. PREDNISOLONE [Suspect]
     Indication: RHEUMATOID ARTHRITIS
     Dosage: SEE IMAGE
     Route: 048
     Dates: start: 20050826, end: 20050911
  6. PREDNISOLONE [Suspect]
     Indication: RHEUMATOID ARTHRITIS
     Dosage: SEE IMAGE
     Route: 048
     Dates: start: 20050912, end: 20051012
  7. PREDNISOLONE [Suspect]
     Indication: RHEUMATOID ARTHRITIS
     Dosage: SEE IMAGE
     Route: 048
     Dates: start: 20051013
  8. LOXONIN (LOXOPROFEN SODIUM) PER ORAL NOS [Suspect]
     Indication: RHEUMATOID ARTHRITIS
     Dosage: 180 MG, UNKNOWN/D; ORAL
     Route: 048
     Dates: start: 20041230, end: 20051017
  9. RHEUMATREX [Suspect]
     Indication: RHEUMATOID ARTHRITIS
     Dosage: 6 MG, WEEKLY; ORAL
     Route: 048
     Dates: start: 20040927
  10. VOLTAREN [Suspect]
     Indication: RHEUMATOID ARTHRITIS
     Dosage: 50 MG, UNKNOWN/D; SUPPOSITORY
     Route: 054
     Dates: start: 20050704, end: 20051018
  11. CLARITHROMYCIN [Suspect]
     Indication: BRONCHITIS
     Dosage: 400 MG, UNKNOWN/D; ORAL
     Route: 048
     Dates: start: 20050929
  12. CYTOTEC (MISOPROSTOL) PER ORAL NOS [Concomitant]
  13. ISONIAZID [Concomitant]
  14. GASTER D TABLET [Concomitant]
  15. DEPAS (ETIZOLAM) PER ORAL NOS [Concomitant]
  16. HALCION (TRIAZOLAM) PER ORAL NOS [Concomitant]
  17. BACTRAMIN (SULFAMETHOXAZOLE, TRIMETHOPRIM) PER ORAL [Concomitant]
  18. HUMACART-N (INSULIN HUMAN) INJECTION [Concomitant]

REACTIONS (6)
  - DIABETES MELLITUS INADEQUATE CONTROL [None]
  - DRUG INTERACTION [None]
  - GLUCOSE URINE PRESENT [None]
  - HEPATIC FUNCTION ABNORMAL [None]
  - INTERSTITIAL LUNG DISEASE [None]
  - RENAL IMPAIRMENT [None]
